FAERS Safety Report 6384054-1 (Version None)
Quarter: 2009Q3

REPORT INFORMATION
  Report Type: 
  Country: None (occurrence: None)
  Receive Date: 20090929
  Receipt Date: 20090917
  Transmission Date: 20100115
  Serious: Yes (Hospitalization)
  Sender: FDA-Public Use
  Company Number: SPV1-2009-01852

PATIENT
  Age: 65 Year
  Sex: Male

DRUGS (4)
  1. ANAGRELIDE HCL [Suspect]
     Indication: ESSENTIAL THROMBOCYTHAEMIA
     Dosage: SEE IMAGE
     Dates: start: 20040901, end: 20060101
  2. ANAGRELIDE HCL [Suspect]
     Indication: ESSENTIAL THROMBOCYTHAEMIA
     Dosage: SEE IMAGE
     Dates: start: 20060101, end: 20080401
  3. ANAGRELIDE HCL [Suspect]
     Indication: ESSENTIAL THROMBOCYTHAEMIA
     Dosage: SEE IMAGE
     Dates: start: 20080401, end: 20090801
  4. ASPIRIN [Concomitant]

REACTIONS (2)
  - PLATELET COUNT DECREASED [None]
  - TUBULOINTERSTITIAL NEPHRITIS [None]
